FAERS Safety Report 8182691-5 (Version None)
Quarter: 2012Q1

REPORT INFORMATION
  Report Type: 
  Country: None (occurrence: None)
  Receive Date: 20120305
  Receipt Date: 20120224
  Transmission Date: 20120608
  Serious: No
  Sender: FDA-Public Use
  Company Number: US-PFIZER INC-2011299302

PATIENT
  Sex: Female
  Weight: 74.83 kg

DRUGS (1)
  1. EFFEXOR XR [Suspect]
     Indication: ANXIETY
     Dosage: 37.5 MG, 2X/DAY
     Route: 048
     Dates: start: 20100101

REACTIONS (4)
  - ANXIETY [None]
  - MALAISE [None]
  - SEDATION [None]
  - NAUSEA [None]
